FAERS Safety Report 6924427-9 (Version None)
Quarter: 2010Q3

REPORT INFORMATION
  Report Type: 
  Country: None (occurrence: None)
  Receive Date: 20100811
  Receipt Date: 20100723
  Transmission Date: 20110219
  Serious: No
  Sender: FDA-Public Use
  Company Number: TPA2010A04224

PATIENT
  Age: 5 Year
  Sex: Male

DRUGS (8)
  1. PREVACID [Suspect]
     Indication: PRODUCT USED FOR UNKNOWN INDICATION
     Dates: start: 20100622
  2. ALLEGRA [Suspect]
     Indication: MULTIPLE ALLERGIES
     Dosage: 6 MG, 2 IN 1 D, ORAL
     Route: 048
     Dates: start: 20100301, end: 20100601
  3. NASONEX [Concomitant]
  4. PULMICORT [Concomitant]
  5. ZYRTEC [Concomitant]
  6. CLARITIN [Concomitant]
  7. DIPHENHYDRAMINE HCL [Concomitant]
  8. HYDROCHLORIDE (ALL OTHER THERAPEUTIC PRODUCTS) [Concomitant]

REACTIONS (5)
  - DROOLING [None]
  - DRUG HYPERSENSITIVITY [None]
  - DYSPHONIA [None]
  - NASOPHARYNGITIS [None]
  - OCULAR HYPERAEMIA [None]
